FAERS Safety Report 10608783 (Version 3)
Quarter: 2014Q4

REPORT INFORMATION
  Report Type: Spontaneous
  Country: KR (occurrence: KR)
  Receive Date: 20141125
  Receipt Date: 20141216
  Transmission Date: 20150529
  Serious: Yes (Hospitalization, Other)
  Sender: FDA-Public Use
  Company Number: KR-GILEAD-2014-0122334

PATIENT
  Age: 47 Year
  Sex: Male
  Weight: 50.5 kg

DRUGS (2)
  1. VIREAD [Suspect]
     Active Substance: TENOFOVIR DISOPROXIL FUMARATE
     Indication: HEPATITIS B
     Dosage: UNK UNK, QD
     Route: 048
  2. KETOTOP                            /00321701/ [Concomitant]
     Indication: MYALGIA
     Dosage: UNK
     Route: 061
     Dates: start: 20140916, end: 20141015

REACTIONS (2)
  - Osteomalacia [Recovering/Resolving]
  - Fanconi syndrome acquired [Recovering/Resolving]

NARRATIVE: CASE EVENT DATE: 20141030
